FAERS Safety Report 15429974 (Version 1)
Quarter: 2018Q3

REPORT INFORMATION
  Report Type: Spontaneous
  Country: CH (occurrence: CH)
  Receive Date: 20180926
  Receipt Date: 20180926
  Transmission Date: 20181010
  Serious: Yes (Other)
  Sender: FDA-Public Use
  Company Number: CH-PFIZER INC-2017523679

PATIENT
  Sex: Male

DRUGS (1)
  1. ZOLOFT [Suspect]
     Active Substance: SERTRALINE HYDROCHLORIDE
     Dosage: 100 MG, 1X/DAY (SINCE A YEAR)
     Route: 064
     Dates: end: 20180404

REACTIONS (4)
  - Maternal exposure during pregnancy [Unknown]
  - Poor feeding infant [Unknown]
  - Premature baby [Recovered/Resolved]
  - Hypothermia neonatal [Recovered/Resolved]

NARRATIVE: CASE EVENT DATE: 2017
